FAERS Safety Report 9434511 (Version 1)
Quarter: 2013Q3

REPORT INFORMATION
  Report Type: Spontaneous
  Country: IT (occurrence: IT)
  Receive Date: 20130801
  Receipt Date: 20130801
  Transmission Date: 20140515
  Serious: Yes (Other)
  Sender: FDA-Public Use
  Company Number: IT-SANOFI-AVENTIS-2013SA054523

PATIENT
  Age: 82 Year
  Sex: Female

DRUGS (5)
  1. CLEXANE T [Suspect]
     Indication: DEEP VEIN THROMBOSIS
     Route: 058
     Dates: start: 20130409, end: 20130504
  2. COUMADIN [Suspect]
     Indication: DEEP VEIN THROMBOSIS
     Dosage: STRENGTH: 5 MG
     Route: 048
     Dates: start: 20130411
  3. TOTALIP [Concomitant]
  4. NORVASC [Concomitant]
     Dosage: STRENGTH: 5 MG
  5. COMBISARTAN [Concomitant]
     Dosage: STRENGTH: 160MG/12.5MG

REACTIONS (2)
  - International normalised ratio increased [Recovering/Resolving]
  - Haematuria [Recovering/Resolving]
